FAERS Safety Report 19235587 (Version 1)
Quarter: 2021Q2

REPORT INFORMATION
  Report Type: Spontaneous
  Country: US (occurrence: US)
  Receive Date: 20210510
  Receipt Date: 20210510
  Transmission Date: 20210717
  Serious: Yes (Hospitalization, Other)
  Sender: FDA-Public Use
  Company Number: US-APOTEX-2021AP011057

PATIENT
  Sex: Male

DRUGS (1)
  1. OLANZAPINE. [Suspect]
     Active Substance: OLANZAPINE
     Indication: PSYCHOTIC DISORDER
     Dosage: 10 MILLIGRAM, 31 TABLET
     Route: 065

REACTIONS (6)
  - Intentional overdose [Unknown]
  - Leukocytosis [Unknown]
  - Anticholinergic syndrome [Recovering/Resolving]
  - Delirium [Recovered/Resolved]
  - Mental status changes [Recovered/Resolved]
  - Aggression [Recovered/Resolved]
